FAERS Safety Report 9678038 (Version 2)
Quarter: 2013Q4

REPORT INFORMATION
  Report Type: Spontaneous
  Country: MX (occurrence: MX)
  Receive Date: 20131108
  Receipt Date: 20131108
  Transmission Date: 20140711
  Serious: Yes (Disabling)
  Sender: FDA-Public Use
  Company Number: MX-B.I. PHARMACEUTICALS,INC./RIDGEFIELD-2013-BI-31579MX

PATIENT
  Age: 73 Year
  Sex: Female
  Weight: 85 kg

DRUGS (5)
  1. MICARDIS PLUS [Suspect]
     Indication: HYPERTENSION
     Dosage: DOSE: 80/12.5 MG
     Route: 048
     Dates: start: 20110609
  2. MICARDIS PLUS [Suspect]
     Indication: PROPHYLAXIS
  3. SACTOZ / PIOGLITAZONE [Concomitant]
     Indication: TYPE 2 DIABETES MELLITUS
     Dosage: 45 MG
     Route: 048
     Dates: start: 201003, end: 201112
  4. DEPRESION TREATMENT [Concomitant]
     Indication: DEPRESSION
  5. GLUCOBAN / GLIBENCLAMIDE/METFORMIN) [Concomitant]
     Indication: TYPE 2 DIABETES MELLITUS
     Dosage: 500/5 MG DAILY
     Route: 048
     Dates: start: 201003, end: 201112

REACTIONS (1)
  - Pain in jaw [Recovered/Resolved]
